FAERS Safety Report 17426626 (Version 2)
Quarter: 2020Q1

REPORT INFORMATION
  Report Type: Spontaneous
  Country: JP (occurrence: JP)
  Receive Date: 20200217
  Receipt Date: 20200228
  Transmission Date: 20200409
  Serious: Yes (Other)
  Sender: FDA-Public Use
  Company Number: JP-TEVA-2020-JP-001775J

PATIENT
  Age: 68 Year
  Sex: Female

DRUGS (2)
  1. LANSOPRAZOLE OD TABLET 15 MG [Suspect]
     Active Substance: LANSOPRAZOLE
     Indication: PRODUCT USED FOR UNKNOWN INDICATION
     Route: 048
  2. CHINESE HERBAL MEDICINE [Suspect]
     Active Substance: HERBALS
     Route: 065

REACTIONS (1)
  - Interstitial lung disease [Recovered/Resolved]
